FAERS Safety Report 15795225 (Version 1)
Quarter: 2019Q1

REPORT INFORMATION
  Report Type: Spontaneous
  Country: US (occurrence: US)
  Receive Date: 20190107
  Receipt Date: 20190107
  Transmission Date: 20190417
  Serious: Yes (Disabling)
  Sender: FDA-Public Use
  Company Number: None

PATIENT
  Age: 69 Year
  Sex: Female
  Weight: 76.5 kg

DRUGS (5)
  1. LEVOTHROXINE [Concomitant]
     Active Substance: LEVOTHYROXINE
  2. MULTIVITAMINS [Concomitant]
     Active Substance: VITAMINS
  3. LACTOBACILLUS [Concomitant]
     Active Substance: LACTOBACILLUS ACIDOPHILUS
  4. OMEPROZOLE [Concomitant]
     Active Substance: OMEPRAZOLE
  5. ACYCLOVIR 400 MG TABLET( SUBSTITUTE FOR ZOVIRAX) [Suspect]
     Active Substance: ACYCLOVIR
     Indication: GENITAL HERPES
     Dosage: ?          QUANTITY:1 TABLET(S);?
     Route: 048
     Dates: start: 20181211, end: 20181228

REACTIONS (9)
  - Dizziness [None]
  - Myalgia [None]
  - Neurological symptom [None]
  - Chills [None]
  - Headache [None]
  - Loss of personal independence in daily activities [None]
  - Piloerection [None]
  - Asthenia [None]
  - Somnolence [None]

NARRATIVE: CASE EVENT DATE: 20181211
